FAERS Safety Report 6208094-8 (Version None)
Quarter: 2009Q2

REPORT INFORMATION
  Report Type: 
  Country: None (occurrence: None)
  Receive Date: 20090529
  Receipt Date: 20090429
  Transmission Date: 20091009
  Serious: No
  Sender: FDA-Public Use
  Company Number: US-KINGPHARMUSA00001-K200900520

PATIENT
  Sex: Male
  Weight: 90.703 kg

DRUGS (7)
  1. FLECTOR [Suspect]
     Indication: BACK PAIN
     Dosage: 1 PATCH, BID AS NEEDED
     Route: 061
     Dates: start: 20090101, end: 20090428
  2. TRAMADOL HCL [Concomitant]
     Dosage: UNK
  3. INSULIN [Concomitant]
     Indication: DIABETES MELLITUS
     Dosage: UNK
  4. LEXAPRO [Concomitant]
     Dosage: UNK
  5. TRICOR [Concomitant]
     Dosage: UNK
  6. LORAZEPAM [Concomitant]
     Indication: SLEEP DISORDER
     Dosage: UNK
  7. NEURONTIN [Concomitant]
     Indication: SLEEP DISORDER
     Dosage: UNK

REACTIONS (1)
  - ABDOMINAL DISCOMFORT [None]
